FAERS Safety Report 4865234-0 (Version None)
Quarter: 2005Q4

REPORT INFORMATION
  Report Type: 
  Country: None (occurrence: None)
  Receive Date: 20051223
  Receipt Date: 20051221
  Transmission Date: 20060501
  Serious: Yes (Other)
  Sender: FDA-Public Use
  Company Number: PHFR2005GB03245

PATIENT
  Age: 85 Year
  Sex: Female

DRUGS (10)
  1. ROSIGLITAZONE [Suspect]
     Indication: DIABETES MELLITUS
     Dosage: 4MG FOUR TIMES PER DAY
     Route: 048
     Dates: start: 20050801, end: 20050930
  2. CARBAMAZEPINE [Suspect]
     Indication: AGITATION
     Dosage: 200MG PER DAY
     Route: 048
     Dates: end: 20051005
  3. GLICLAZIDE [Suspect]
     Indication: DIABETES MELLITUS
     Dosage: 120MG FOUR TIMES PER DAY
     Route: 048
     Dates: end: 20050930
  4. ASPIRIN [Concomitant]
     Dosage: 75MG PER DAY
     Route: 048
  5. FRUSEMIDE [Concomitant]
     Route: 065
  6. FYBOGEL [Concomitant]
     Indication: CONSTIPATION
     Dosage: 2SAC PER DAY
     Route: 048
  7. ZOPICLONE [Concomitant]
     Indication: INSOMNIA
     Dosage: 3.75MG PER DAY
     Route: 048
  8. LACTULOSE [Concomitant]
     Dosage: 30ML PER DAY
     Route: 048
  9. DIPERODON [Concomitant]
     Route: 065
  10. LANSOPRAZOLE [Concomitant]
     Indication: GASTRITIS
     Dosage: 30MG PER DAY
     Route: 048

REACTIONS (3)
  - ALANINE AMINOTRANSFERASE [None]
  - BLOOD ALKALINE PHOSPHATASE INCREASED [None]
  - LIVER FUNCTION TEST ABNORMAL [None]
